FAERS Safety Report 10305167 (Version 1)
Quarter: 2014Q3

REPORT INFORMATION
  Report Type: Spontaneous
  Country: US (occurrence: None)
  Receive Date: 20140711
  Receipt Date: 20140711
  Transmission Date: 20150326
  Serious: Yes (Disabling)
  Sender: FDA-Public Use
  Company Number: None

PATIENT
  Age: 87 Year
  Sex: Male
  Weight: 55.34 kg

DRUGS (7)
  1. ENDO CART [Concomitant]
  2. AVODART [Concomitant]
     Active Substance: DUTASTERIDE
  3. TOPROL XL [Concomitant]
     Active Substance: METOPROLOL SUCCINATE
  4. FLOMAX [Concomitant]
     Active Substance: TAMSULOSIN HYDROCHLORIDE
  5. PROLIA [Suspect]
     Active Substance: DENOSUMAB
     Indication: OSTEOPOROSIS
     Dates: start: 20130904, end: 20130904
  6. ZOCOR [Concomitant]
     Active Substance: SIMVASTATIN
  7. ALTACE [Concomitant]
     Active Substance: RAMIPRIL

REACTIONS (3)
  - Abasia [None]
  - Pain [None]
  - Gait disturbance [None]

NARRATIVE: CASE EVENT DATE: 20130904
